FAERS Safety Report 9319177 (Version 1)
Quarter: 2013Q2

REPORT INFORMATION
  Report Type: Spontaneous
  Country: US (occurrence: None)
  Receive Date: 20130523
  Receipt Date: 20130523
  Transmission Date: 20140414
  Serious: Yes (Other)
  Sender: FDA-Public Use
  Company Number: ACO_36239_2013

PATIENT
  Age: 38 Year
  Sex: Female
  Weight: 71.2 kg

DRUGS (2)
  1. AMPYRA (DALFAMPRIDINE) TABLET, 10MG [Suspect]
     Indication: MULTIPLE SCLEROSIS
     Dates: start: 20130502
  2. VITAMIN D (ERGOCALCIFEROL) [Concomitant]

REACTIONS (3)
  - Diabetes mellitus [None]
  - Sensory loss [None]
  - Paraesthesia [None]
